FAERS Safety Report 7748766-7 (Version None)
Quarter: 2011Q3

REPORT INFORMATION
  Report Type: 
  Country: None (occurrence: None)
  Receive Date: 20110913
  Receipt Date: 20110913
  Transmission Date: 20111222
  Serious: Yes (Hospitalization, Disabling, Other)
  Sender: FDA-Public Use
  Company Number: None

PATIENT
  Sex: Female
  Weight: 67.1324 kg

DRUGS (1)
  1. YAZ [Suspect]

REACTIONS (31)
  - WEIGHT INCREASED [None]
  - PROCTITIS ULCERATIVE [None]
  - GASTRITIS ATROPHIC [None]
  - GASTROOESOPHAGEAL REFLUX DISEASE [None]
  - DRUG INEFFECTIVE [None]
  - GASTRITIS [None]
  - INFECTION [None]
  - PAIN [None]
  - PALPITATIONS [None]
  - HAEMATOCHEZIA [None]
  - CLOSTRIDIAL INFECTION [None]
  - DIARRHOEA [None]
  - EATING DISORDER [None]
  - IRON DEFICIENCY [None]
  - ULCER [None]
  - DIZZINESS [None]
  - DEFAECATION URGENCY [None]
  - COLITIS ULCERATIVE [None]
  - FREQUENT BOWEL MOVEMENTS [None]
  - MALAISE [None]
  - DEHYDRATION [None]
  - UNEVALUABLE EVENT [None]
  - GASTRIC DISORDER [None]
  - DYSPEPSIA [None]
  - RECTAL HAEMORRHAGE [None]
  - GALLBLADDER DISORDER [None]
  - PAINFUL DEFAECATION [None]
  - MICROCYTIC ANAEMIA [None]
  - CARDIAC DISORDER [None]
  - ACTIVITIES OF DAILY LIVING IMPAIRED [None]
  - FATIGUE [None]
